FAERS Safety Report 10205895 (Version 1)
Quarter: 2014Q2

REPORT INFORMATION
  Report Type: Spontaneous
  Country: CA (occurrence: CA)
  Receive Date: 20140530
  Receipt Date: 20140530
  Transmission Date: 20141212
  Serious: Yes (Other)
  Sender: FDA-Public Use
  Company Number: CA-AMGEN-CANSP2014039691

PATIENT
  Age: 64 Year
  Sex: Female

DRUGS (6)
  1. NEUPOGEN [Suspect]
     Indication: PRODUCT USED FOR UNKNOWN INDICATION
     Dosage: UNK
     Route: 065
  2. FLAGYL                             /00012501/ [Concomitant]
     Dosage: UNK
  3. VOLTAREN                           /00372301/ [Concomitant]
     Dosage: UNK
  4. SYNTHROID [Concomitant]
     Dosage: UNK
  5. ONDANSETRON [Concomitant]
     Dosage: UNK
  6. CLAVULIN                           /00756801/ [Concomitant]
     Dosage: UNK

REACTIONS (2)
  - Blood pressure decreased [Unknown]
  - Diarrhoea [Unknown]
